FAERS Safety Report 7619679-6 (Version None)
Quarter: 2011Q3

REPORT INFORMATION
  Report Type: 
  Country: None (occurrence: None)
  Receive Date: 20110719
  Receipt Date: 20110707
  Transmission Date: 20111222
  Serious: Yes (Hospitalization, Other)
  Sender: FDA-Public Use
  Company Number: US-BAYER-US-2006-020201

PATIENT
  Age: 52 Year
  Sex: Female

DRUGS (4)
  1. LYRICA [Concomitant]
     Dosage: AT NIGHT
     Dates: start: 20040101, end: 20070115
  2. BETASERON [Suspect]
     Indication: MULTIPLE SCLEROSIS
     Route: 058
     Dates: start: 20001019, end: 20050919
  3. METHADONE HCL [Concomitant]
     Indication: MULTIPLE SCLEROSIS
     Dosage: 10 MG, UNK
     Dates: start: 20050101
  4. BETASERON [Suspect]
     Dosage: BETAJECT
     Route: 058
     Dates: start: 20051003

REACTIONS (13)
  - THROMBOSIS [None]
  - INJECTION SITE HAEMORRHAGE [None]
  - OEDEMA PERIPHERAL [None]
  - FALL [None]
  - HAND FRACTURE [None]
  - FACE INJURY [None]
  - UPPER LIMB FRACTURE [None]
  - PAIN IN EXTREMITY [None]
  - CONTUSION [None]
  - HEAD INJURY [None]
  - FACIAL BONES FRACTURE [None]
  - DACRYOSTENOSIS ACQUIRED [None]
  - LIMB OPERATION [None]
